FAERS Safety Report 22878159 (Version 2)
Quarter: 2023Q4

REPORT INFORMATION
  Report Type: Spontaneous
  Country: US (occurrence: US)
  Receive Date: 20230829
  Receipt Date: 20231018
  Transmission Date: 20240110
  Serious: Yes (Hospitalization, Other)
  Sender: FDA-Public Use
  Company Number: US-IPSEN Group, Research and Development-2023-20262

PATIENT
  Age: 4 Year
  Sex: Female
  Weight: 8.2 kg

DRUGS (1)
  1. INCRELEX [Suspect]
     Active Substance: MECASERMIN
     Indication: Insulin-like growth factor abnormal
     Dosage: 120 G/KG/DOSE SQ TWICE DAILY
     Route: 058

REACTIONS (3)
  - Hypoglycaemia [Unknown]
  - Scoliosis [Unknown]
  - Respiratory disorder [Unknown]
